FAERS Safety Report 6862491-6 (Version None)
Quarter: 2010Q3

REPORT INFORMATION
  Report Type: 
  Country: None (occurrence: None)
  Receive Date: 20100719
  Receipt Date: 20100701
  Transmission Date: 20110219
  Serious: Yes (Hospitalization)
  Sender: FDA-Public Use
  Company Number: THQ2010A01839

PATIENT
  Age: 75 Year
  Sex: 0

DRUGS (1)
  1. LANSOPRAZOLE [Suspect]
     Dosage: 60 MG, PER ORAL
     Route: 048
     Dates: start: 20100601

REACTIONS (2)
  - CHOLECYSTITIS [None]
  - CHOLESTASIS [None]
